FAERS Safety Report 7287785-4 (Version None)
Quarter: 2011Q1

REPORT INFORMATION
  Report Type: 
  Country: None (occurrence: None)
  Receive Date: 20110201
  Receipt Date: 20110120
  Transmission Date: 20110831
  Serious: Yes (Death)
  Sender: FDA-Public Use
  Company Number: AE 2011-021

PATIENT
  Age: 87 Year
  Sex: Female

DRUGS (1)
  1. FAZACLO ODT [Suspect]
     Dosage: 43.75 MG DAILY PO
     Route: 048
     Dates: start: 20100927, end: 20101222

REACTIONS (1)
  - DEATH [None]
